FAERS Safety Report 5805953-2 (Version None)
Quarter: 2008Q3

REPORT INFORMATION
  Report Type: 
  Country: None (occurrence: None)
  Receive Date: 20080710
  Receipt Date: 20080704
  Transmission Date: 20090109
  Serious: Yes (Life-Threatening, Hospitalization, Other)
  Sender: FDA-Public Use
  Company Number: IT-BAYER-200820375GPV

PATIENT
  Age: 82 Year
  Sex: Male
  Weight: 80 kg

DRUGS (2)
  1. SORAFENIB [Suspect]
     Indication: RENAL CELL CARCINOMA
     Route: 048
     Dates: start: 20080514, end: 20080520
  2. OMEPRAZOLE [Concomitant]
     Indication: GASTRIC ULCER
     Route: 042
     Dates: start: 20080521, end: 20080527

REACTIONS (2)
  - GASTRIC ULCER [None]
  - HAEMOGLOBIN DECREASED [None]
